FAERS Safety Report 19402361 (Version 1)
Quarter: 2021Q2

REPORT INFORMATION
  Report Type: Spontaneous
  Country: US (occurrence: US)
  Receive Date: 20210610
  Receipt Date: 20210610
  Transmission Date: 20210717
  Serious: Yes (Death, Hospitalization)
  Sender: FDA-Public Use
  Company Number: US-MYLANLABS-2021M1033739

PATIENT
  Sex: Male

DRUGS (3)
  1. FENTANYL. [Suspect]
     Active Substance: FENTANYL
     Indication: PRODUCT USED FOR UNKNOWN INDICATION
     Dosage: ADMINISTERED UPON PRESENTATION TO THE HOSPITAL
     Route: 064
  2. METHADONE [Suspect]
     Active Substance: METHADONE HYDROCHLORIDE
     Indication: DRUG USE DISORDER
     Dosage: THE MOTHER HAD BEEN RECEIVING METHADONE MAINTENANCE THERAPY FOR 2 YEARS.
     Route: 064
  3. MORPHINE [Suspect]
     Active Substance: MORPHINE
     Indication: PRODUCT USED FOR UNKNOWN INDICATION
     Dosage: ADMINISTERED UPON PRESENTATION TO THE HOSPITAL
     Route: 064

REACTIONS (8)
  - Vena cava thrombosis [Fatal]
  - Foetal exposure during pregnancy [Fatal]
  - Foetal placental thrombosis [Fatal]
  - Nucleated red cells [Unknown]
  - Extramedullary haemopoiesis [Unknown]
  - Renal vein thrombosis [Fatal]
  - Hypoxic-ischaemic encephalopathy [Unknown]
  - Respiratory failure [Fatal]
